FAERS Safety Report 8320045-9 (Version None)
Quarter: 2012Q2

REPORT INFORMATION
  Report Type: 
  Country: None (occurrence: None)
  Receive Date: 20120427
  Receipt Date: 20120423
  Transmission Date: 20120825
  Serious: Yes (Other)
  Sender: FDA-Public Use
  Company Number: FR-TEVA-323687USA

PATIENT
  Sex: Female
  Weight: 84 kg

DRUGS (2)
  1. RITUXIMAB [Suspect]
     Dates: start: 20110628, end: 20111208
  2. TREANDA [Suspect]
     Route: 042
     Dates: start: 20110405, end: 20110515

REACTIONS (1)
  - INTERSTITIAL LUNG DISEASE [None]
